FAERS Safety Report 7998915-0 (Version None)
Quarter: 2011Q4

REPORT INFORMATION
  Report Type: 
  Country: None (occurrence: None)
  Receive Date: 20111221
  Receipt Date: 20111215
  Transmission Date: 20120403
  Serious: Yes (Hospitalization)
  Sender: FDA-Public Use
  Company Number: DE-GLAXOSMITHKLINE-B0764077B

PATIENT
  Sex: Female
  Weight: 94 kg

DRUGS (2)
  1. TOPOTECAN [Suspect]
     Indication: OVARIAN CANCER
     Dosage: 2MG PER DAY
     Route: 042
     Dates: start: 20111031
  2. BLINDED STUDY MEDICATION [Suspect]
     Indication: OVARIAN CANCER
     Route: 048
     Dates: start: 20111105

REACTIONS (3)
  - PLATELET COUNT [None]
  - HAEMOGLOBIN [None]
  - DIZZINESS [None]
